FAERS Safety Report 5768709-5 (Version None)
Quarter: 2008Q2

REPORT INFORMATION
  Report Type: 
  Country: None (occurrence: None)
  Receive Date: 20080612
  Receipt Date: 20080607
  Transmission Date: 20081010
  Serious: No
  Sender: FDA-Public Use
  Company Number: BR-BOEHRINGER INGELHEIM GMBH, GERMANY-2008-BP-08551BR

PATIENT
  Sex: Male
  Weight: 47 kg

DRUGS (1)
  1. TIOTROPIUM INH. POWDER (PLACEBO) [Suspect]
     Indication: CHRONIC OBSTRUCTIVE PULMONARY DISEASE
     Dosage: 1 PUFF QD
     Route: 055
     Dates: start: 20031009, end: 20070925

REACTIONS (1)
  - CHRONIC OBSTRUCTIVE PULMONARY DISEASE [None]
